FAERS Safety Report 4270452-9 (Version None)
Quarter: 2004Q1

REPORT INFORMATION
  Report Type: 
  Country: None (occurrence: None)
  Receive Date: 20040114
  Receipt Date: 20040102
  Transmission Date: 20041129
  Serious: Yes (Hospitalization)
  Sender: FDA-Public Use
  Company Number: US-GLAXOSMITHKLINE-A0492918A

PATIENT
  Age: 59 Year
  Sex: Female
  Weight: 95 kg

DRUGS (13)
  1. AVANDIA [Suspect]
     Indication: DIABETES MELLITUS INSULIN-DEPENDENT
     Dosage: 8MG IN THE MORNING
     Route: 048
     Dates: end: 20010726
  2. ACTOS [Suspect]
     Indication: ILL-DEFINED DISORDER
     Dosage: 30MG PER DAY
     Route: 065
     Dates: start: 20001206
  3. AMITRIPTYLINE + PERPHENAZINE [Concomitant]
     Route: 048
  4. CLONAZEPAM [Concomitant]
     Dosage: .5MG THREE TIMES PER DAY
     Route: 048
  5. DYAZIDE [Concomitant]
     Dosage: 1CAP PER DAY
     Route: 048
  6. TENORMIN [Concomitant]
     Dosage: 50MG PER DAY
     Route: 048
  7. HUMULIN 70/30 [Concomitant]
  8. MACROBID [Concomitant]
     Dosage: 100MG TWICE PER DAY
     Route: 048
  9. CEPHALEXIN [Concomitant]
     Dosage: 250MG FOUR TIMES PER DAY
     Route: 048
  10. VASOTEC [Concomitant]
     Route: 048
  11. OPTIMINE [Concomitant]
     Indication: MIDDLE EAR EFFUSION
     Dosage: 1MG TWICE PER DAY
     Route: 048
  12. LOPID [Concomitant]
  13. GLUCOPHAGE [Concomitant]
     Dosage: 500MG AT NIGHT
     Dates: start: 19990909, end: 19991001

REACTIONS (25)
  - ANGINA UNSTABLE [None]
  - BACTERIAL INFECTION [None]
  - BRONCHITIS [None]
  - BRONCHOSPASM [None]
  - CARDIAC FAILURE CONGESTIVE [None]
  - CARDIOMEGALY [None]
  - CARPAL TUNNEL SYNDROME [None]
  - CONSTIPATION [None]
  - CYSTITIS HAEMORRHAGIC [None]
  - DIABETES MELLITUS INADEQUATE CONTROL [None]
  - DYSPNOEA [None]
  - DYSPNOEA PAROXYSMAL NOCTURNAL [None]
  - FLUID OVERLOAD [None]
  - FLUID RETENTION [None]
  - FUNGAL INFECTION [None]
  - HAEMORRHOIDS [None]
  - LOCALISED OSTEOARTHRITIS [None]
  - PHARYNGITIS [None]
  - PNEUMONIA [None]
  - RALES [None]
  - SINUSITIS [None]
  - SKIN FISSURES [None]
  - VARICOSE VEIN [None]
  - WEIGHT DECREASED [None]
  - WEIGHT INCREASED [None]
